FAERS Safety Report 7720292-0 (Version None)
Quarter: 2011Q3

REPORT INFORMATION
  Report Type: 
  Country: None (occurrence: None)
  Receive Date: 20110826
  Receipt Date: 20110826
  Transmission Date: 20111222
  Serious: No
  Sender: FDA-Public Use
  Company Number: None

PATIENT

DRUGS (1)
  1. OXYCODONE HCL AND ACETAMINOPHEN [Suspect]

REACTIONS (5)
  - INCORRECT DOSE ADMINISTERED [None]
  - LIVER INJURY [None]
  - PRODUCT LABEL ISSUE [None]
  - PRODUCT QUALITY ISSUE [None]
  - WRONG DRUG ADMINISTERED [None]
